FAERS Safety Report 7874386-X (Version None)
Quarter: 2011Q4

REPORT INFORMATION
  Report Type: 
  Country: None (occurrence: None)
  Receive Date: 20111030
  Receipt Date: 20110519
  Transmission Date: 20120403
  Serious: No
  Sender: FDA-Public Use
  Company Number: US-AMGEN-USASP2011025978

PATIENT
  Age: 47 Year
  Sex: Female
  Weight: 61.224 kg

DRUGS (6)
  1. ENBREL [Suspect]
     Indication: PRODUCT USED FOR UNKNOWN INDICATION
     Dosage: 50 MG, QWK
     Route: 058
  2. METHOTREXATE [Concomitant]
     Dosage: 2.5 MG, UNK
     Route: 048
  3. NAPROXEN [Concomitant]
     Dosage: 375 MG, UNK
     Route: 048
  4. PAXIL [Concomitant]
     Dosage: 10 MG, UNK
     Route: 048
  5. HYDROXYCHLOROQUINE SULFATE [Concomitant]
     Dosage: 200 MG, UNK
     Route: 048
  6. LEUCOVORIN CALCIUM [Concomitant]
     Dosage: 5 MG, UNK
     Route: 048

REACTIONS (2)
  - INJECTION SITE ERYTHEMA [None]
  - INJECTION SITE PRURITUS [None]
